FAERS Safety Report 17816704 (Version 1)
Quarter: 2020Q2

REPORT INFORMATION
  Report Type: Report from Study
  Country: US (occurrence: US)
  Receive Date: 20200522
  Receipt Date: 20200522
  Transmission Date: 20200714
  Serious: Yes (Hospitalization)
  Sender: FDA-Public Use
  Company Number: US-ADAMAS PHARMA, LLC-2020ADA01162

PATIENT
  Age: 67 Year
  Sex: Female

DRUGS (6)
  1. PEPCID [Concomitant]
     Active Substance: FAMOTIDINE
  2. SINEMET [Concomitant]
     Active Substance: CARBIDOPA\LEVODOPA
  3. BACLOFEN. [Concomitant]
     Active Substance: BACLOFEN
  4. GABAPENTIN. [Concomitant]
     Active Substance: GABAPENTIN
  5. GOCOVRI [Suspect]
     Active Substance: AMANTADINE
     Indication: DYSKINESIA
     Dosage: 137 MG, 1X/DAY AT BEDTIME
     Route: 048
     Dates: start: 20191106, end: 202004
  6. OXYCODONE [Concomitant]
     Active Substance: OXYCODONE

REACTIONS (2)
  - Pneumonia aspiration [Not Recovered/Not Resolved]
  - Sepsis [Not Recovered/Not Resolved]

NARRATIVE: CASE EVENT DATE: 202004
